FAERS Safety Report 18923174 (Version 4)
Quarter: 2021Q1

REPORT INFORMATION
  Report Type: Spontaneous
  Country: US (occurrence: US)
  Receive Date: 20210222
  Receipt Date: 20210311
  Transmission Date: 20210420
  Serious: Yes (Other)
  Sender: FDA-Public Use
  Company Number: US-ROCHE-2771163

PATIENT
  Age: 61 Year
  Sex: Female
  Weight: 58.7 kg

DRUGS (16)
  1. RITUXAN [Suspect]
     Active Substance: RITUXIMAB
     Route: 065
     Dates: start: 199801
  2. RITUXAN [Suspect]
     Active Substance: RITUXIMAB
     Route: 065
     Dates: start: 201312
  3. RITUXAN [Suspect]
     Active Substance: RITUXIMAB
     Route: 065
     Dates: start: 1997
  4. VINCRISTINE [Concomitant]
     Active Substance: VINCRISTINE
  5. RITUXAN [Suspect]
     Active Substance: RITUXIMAB
     Indication: B-CELL LYMPHOMA
     Dosage: ALMOST 2 YEARS MAINTENANCE
     Route: 065
     Dates: start: 199509
  6. RITUXAN [Suspect]
     Active Substance: RITUXIMAB
     Route: 065
     Dates: start: 201303
  7. PREDNISONE. [Concomitant]
     Active Substance: PREDNISONE
  8. RITUXAN [Suspect]
     Active Substance: RITUXIMAB
     Route: 065
     Dates: start: 196608
  9. RITUXAN [Suspect]
     Active Substance: RITUXIMAB
     Route: 065
     Dates: start: 201704
  10. BENDAMUSTINE [Concomitant]
     Active Substance: BENDAMUSTINE
     Indication: B-CELL LYMPHOMA
     Dates: start: 201208
  11. TECENTRIQ [Suspect]
     Active Substance: ATEZOLIZUMAB
     Indication: LYMPHOMA
     Route: 042
  12. CYCLOPHOSPHAMIDE. [Concomitant]
     Active Substance: CYCLOPHOSPHAMIDE
  13. FLUDARABINE [Concomitant]
     Active Substance: FLUDARABINE PHOSPHATE
  14. RITUXAN [Suspect]
     Active Substance: RITUXIMAB
     Route: 065
     Dates: start: 201208
  15. CHLORAMBUCIL [Concomitant]
     Active Substance: CHLORAMBUCIL
  16. DOXORUBICIN [Concomitant]
     Active Substance: DOXORUBICIN

REACTIONS (1)
  - B-cell lymphoma recurrent [Not Recovered/Not Resolved]

NARRATIVE: CASE EVENT DATE: 20210208
